FAERS Safety Report 17967496 (Version 1)
Quarter: 2020Q3

REPORT INFORMATION
  Report Type: Spontaneous
  Country: GB (occurrence: GB)
  Receive Date: 20200701
  Receipt Date: 20200701
  Transmission Date: 20201103
  Serious: Yes (Life-Threatening, Other)
  Sender: FDA-Public Use
  Company Number: GB-TEVA-2020-GB-1792974

PATIENT
  Age: 5 Year
  Sex: Female
  Weight: 19 kg

DRUGS (10)
  1. SODIUM VALPROATE [Suspect]
     Active Substance: VALPROATE SODIUM
     Indication: RETT SYNDROME
     Dosage: 720 MILLIGRAM
     Route: 048
  2. HYOSCINE HYDROBROMIDE [Concomitant]
     Active Substance: SCOPOLAMINE HYDROBROMIDE
  3. LAMOTRIGINE. [Suspect]
     Active Substance: LAMOTRIGINE
     Indication: RETT SYNDROME
     Dosage: TITRATING DOSE BUT WAS ON 2.5MG BD WHEN ADMITTED ON 3.6.20
     Route: 048
     Dates: start: 20200512, end: 20200603
  4. SODIUM PICOSULFATE [Concomitant]
     Active Substance: SODIUM PICOSULFATE
  5. CEFALEXIN [Concomitant]
     Active Substance: CEPHALEXIN
  6. CLOBAZAM. [Concomitant]
     Active Substance: CLOBAZAM
  7. LANSOPRAZOLE. [Suspect]
     Active Substance: LANSOPRAZOLE
     Indication: GASTROOESOPHAGEAL REFLUX DISEASE
     Dosage: 15 MILLIGRAM DAILY; IN THE MORNING
     Route: 048
  8. GLYCOPYRRONIUM BROMIDE [Concomitant]
     Active Substance: GLYCOPYRRONIUM
  9. MACROGOL [Concomitant]
     Active Substance: POLYETHYLENE GLYCOLS
  10. LEVETIRACETAM. [Concomitant]
     Active Substance: LEVETIRACETAM

REACTIONS (1)
  - Pancreatitis [Not Recovered/Not Resolved]
